FAERS Safety Report 6076386-1 (Version None)
Quarter: 2009Q1

REPORT INFORMATION
  Report Type: 
  Country: None (occurrence: None)
  Receive Date: 20090210
  Receipt Date: 20090126
  Transmission Date: 20090719
  Serious: Yes (Hospitalization)
  Sender: FDA-Public Use
  Company Number: 2009S1001491

PATIENT
  Age: 12 Year
  Sex: Male

DRUGS (1)
  1. AMITRIPTYLINE HYDROCHLORIDE [Suspect]

REACTIONS (31)
  - ABDOMINAL PAIN [None]
  - ALANINE AMINOTRANSFERASE INCREASED [None]
  - ALCOHOL POISONING [None]
  - ASPARTATE AMINOTRANSFERASE INCREASED [None]
  - BLOOD CHLORIDE INCREASED [None]
  - BLOOD CREATININE INCREASED [None]
  - BLOOD GLUCOSE INCREASED [None]
  - BLOOD PRESSURE DECREASED [None]
  - BLOOD SODIUM DECREASED [None]
  - BLOOD UREA INCREASED [None]
  - COMA [None]
  - DEHYDRATION [None]
  - DEPRESSED LEVEL OF CONSCIOUSNESS [None]
  - DRUG TOXICITY [None]
  - ELECTROCARDIOGRAM QT PROLONGED [None]
  - EXTENSOR PLANTAR RESPONSE [None]
  - HAEMODIALYSIS [None]
  - HAEMOGLOBIN DECREASED [None]
  - HEPATOMEGALY [None]
  - HYPOREFLEXIA [None]
  - HYPOTHERMIA [None]
  - LABORATORY TEST ABNORMAL [None]
  - MUCOSAL DRYNESS [None]
  - MYDRIASIS [None]
  - PANCREATITIS ACUTE [None]
  - PLATELET COUNT INCREASED [None]
  - RESPIRATORY ACIDOSIS [None]
  - RESPIRATORY RATE INCREASED [None]
  - SINUS BRADYCARDIA [None]
  - VOMITING [None]
  - WHITE BLOOD CELL COUNT INCREASED [None]
